FAERS Safety Report 9279632 (Version 1)
Quarter: 2013Q2

REPORT INFORMATION
  Report Type: Spontaneous
  Country: US (occurrence: US)
  Receive Date: 20130509
  Receipt Date: 20130509
  Transmission Date: 20140414
  Serious: Yes (Other)
  Sender: FDA-Public Use
  Company Number: US-BIOGENIDEC-2013BI040157

PATIENT
  Sex: Female

DRUGS (1)
  1. TYSABRI [Suspect]
     Indication: MULTIPLE SCLEROSIS
     Route: 042
     Dates: start: 20120724

REACTIONS (5)
  - Convulsion [Unknown]
  - Depression [Unknown]
  - Multiple allergies [Unknown]
  - Migraine [Unknown]
  - Muscular weakness [Unknown]
